FAERS Safety Report 16895970 (Version 1)
Quarter: 2019Q4

REPORT INFORMATION
  Report Type: Spontaneous
  Country: US (occurrence: US)
  Receive Date: 20190814
  Receipt Date: 20190814
  Transmission Date: 20200122
  Serious: No
  Sender: FDA-Public Use
  Company Number: None

PATIENT
  Age: 59 Year
  Sex: Male

DRUGS (1)
  1. REGADENOSON [Suspect]
     Active Substance: REGADENOSON
     Indication: VASCULAR OPERATION
     Route: 042
     Dates: start: 20190708, end: 20190708

REACTIONS (4)
  - Dizziness [None]
  - Bradycardia [None]
  - Respiratory depression [None]
  - Hypotension [None]

NARRATIVE: CASE EVENT DATE: 20190708
